FAERS Safety Report 9565867 (Version 1)
Quarter: 2013Q3

REPORT INFORMATION
  Report Type: Report from Study
  Country: BR (occurrence: BR)
  Receive Date: 20130930
  Receipt Date: 20130930
  Transmission Date: 20140515
  Serious: Yes (Other)
  Sender: FDA-Public Use
  Company Number: PHHY2013BR108778

PATIENT
  Age: 63 Year
  Sex: Female

DRUGS (10)
  1. FORASEQ [Suspect]
     Indication: BRONCHITIS
     Dosage: 1 DF, QD (1 CAPSULE OF EACH TREATMENT, ONCE A DAY)
  2. FORASEQ [Suspect]
     Dosage: 1 DF, BID (1 CAPSULE OF EACH TREATMENT, TWICE A DAY)
  3. TEGRETOL [Suspect]
     Indication: EPILEPSY
     Dosage: 1 DF, DAILY
     Route: 048
  4. LOSARTAN [Concomitant]
     Indication: HYPERTENSION
     Dosage: UNK UKN, UNK
  5. PIRIDON [Concomitant]
     Indication: EPILEPSY
     Dosage: UNK UKN, UNK
  6. RIVOTRIL [Concomitant]
     Indication: ANTIDEPRESSANT THERAPY
     Dosage: UNK UKN, UNK
  7. RIVOTRIL [Concomitant]
     Indication: SEDATIVE THERAPY
  8. GARDENAL//PHENOBARBITAL [Concomitant]
     Indication: ANTIDEPRESSANT THERAPY
     Dosage: UNK UKN, UNK
  9. GARDENAL//PHENOBARBITAL [Concomitant]
     Indication: SEDATIVE THERAPY
  10. BUPROPION [Concomitant]
     Indication: ANXIETY
     Dosage: UNK UKN, UNK

REACTIONS (3)
  - Myocardial ischaemia [Recovering/Resolving]
  - Emphysema [Recovering/Resolving]
  - Dyspnoea [Recovering/Resolving]
